FAERS Safety Report 12239424 (Version 1)
Quarter: 2016Q2

REPORT INFORMATION
  Report Type: Spontaneous
  Country: BR (occurrence: BR)
  Receive Date: 20160405
  Receipt Date: 20160405
  Transmission Date: 20160815
  Serious: Yes (Other)
  Sender: FDA-Public Use
  Company Number: BR-JNJFOC-20160330090

PATIENT
  Sex: Female

DRUGS (1)
  1. HALDOL [Suspect]
     Active Substance: HALOPERIDOL
     Indication: PRODUCT USED FOR UNKNOWN INDICATION
     Route: 048
     Dates: start: 20160331

REACTIONS (7)
  - Dysstasia [Unknown]
  - Feeling abnormal [Unknown]
  - Eye disorder [Unknown]
  - Vomiting [Unknown]
  - Nausea [Unknown]
  - Abasia [Unknown]
  - Malaise [Unknown]

NARRATIVE: CASE EVENT DATE: 20160331
